FAERS Safety Report 22205873 (Version 1)
Quarter: 2023Q2

REPORT INFORMATION
  Report Type: Spontaneous
  Country: JP (occurrence: JP)
  Receive Date: 20230413
  Receipt Date: 20230413
  Transmission Date: 20230721
  Serious: Yes (Other)
  Sender: FDA-Public Use
  Company Number: JP-ASTELLAS-2023JP004423

PATIENT
  Age: 18 Year
  Sex: Female

DRUGS (3)
  1. PROGRAF [Suspect]
     Active Substance: TACROLIMUS
     Indication: Sjogren^s syndrome
     Dosage: 0.5 MG, UNKNOWN FREQ.
     Route: 048
     Dates: start: 2023
  2. PROGRAF [Suspect]
     Active Substance: TACROLIMUS
     Route: 048
  3. URSO [Concomitant]
     Active Substance: URSODIOL
     Indication: Autoimmune hepatitis
     Dosage: UNK UNK, UNKNOWN FREQ.
     Route: 048

REACTIONS (6)
  - Autoimmune hepatitis [Unknown]
  - Arthropathy [Unknown]
  - Chest pain [Unknown]
  - Pneumonia [Unknown]
  - Liver function test increased [Recovering/Resolving]
  - Product use in unapproved indication [Unknown]

NARRATIVE: CASE EVENT DATE: 20230101
